FAERS Safety Report 5365146-2 (Version None)
Quarter: 2007Q2

REPORT INFORMATION
  Report Type: 
  Country: None (occurrence: None)
  Receive Date: 20070530
  Receipt Date: 20070118
  Transmission Date: 20071010
  Serious: No
  Sender: FDA-Public Use
  Company Number: 2006PV016538

PATIENT
  Age: 63 Year
  Sex: Female
  Weight: 97.5234 kg

DRUGS (8)
  1. BYETTA [Suspect]
     Indication: DIABETES MELLITUS NON-INSULIN-DEPENDENT
     Dosage: 5 MCG; BID; SC, 10 MCG; BID; SC, 5 MCG; BID; SC
     Route: 058
     Dates: start: 20060606, end: 20060701
  2. BYETTA [Suspect]
     Indication: DIABETES MELLITUS NON-INSULIN-DEPENDENT
     Dosage: 5 MCG; BID; SC, 10 MCG; BID; SC, 5 MCG; BID; SC
     Route: 058
     Dates: start: 20060701, end: 20060801
  3. BYETTA [Suspect]
     Indication: DIABETES MELLITUS NON-INSULIN-DEPENDENT
     Dosage: 5 MCG; BID; SC, 10 MCG; BID; SC, 5 MCG; BID; SC
     Route: 058
     Dates: start: 20060801
  4. BYETTA [Suspect]
  5. GLUCOPHAGE [Concomitant]
  6. AMARYL [Concomitant]
  7. NEXIUM [Concomitant]
  8. BENICAR HCT [Concomitant]

REACTIONS (8)
  - BLOOD GLUCOSE DECREASED [None]
  - BLOOD GLUCOSE FLUCTUATION [None]
  - BLOOD GLUCOSE INCREASED [None]
  - CONSTIPATION [None]
  - FEELING ABNORMAL [None]
  - INJECTION SITE BRUISING [None]
  - INJECTION SITE DISCOMFORT [None]
  - NAUSEA [None]
